FAERS Safety Report 17881405 (Version 2)
Quarter: 2022Q2

REPORT INFORMATION
  Report Type: Spontaneous
  Country: US (occurrence: US)
  Receive Date: 20200610
  Receipt Date: 20220602
  Transmission Date: 20220721
  Serious: No
  Sender: FDA-Public Use
  Company Number: US-COLLEGIUM PHARMACEUTICAL, INC.-2019CGM00163

PATIENT
  Sex: Male
  Weight: 80.726 kg

DRUGS (25)
  1. XTAMPZA ER [Suspect]
     Active Substance: OXYCODONE
     Indication: Neuralgia
     Dosage: UNK UNK, 2X/DAY (EVERY 12 HOURS)
     Route: 048
     Dates: start: 2018
  2. XTAMPZA ER [Suspect]
     Active Substance: OXYCODONE
     Indication: Pain
     Dosage: 36 MG, 2X/DAY (EVERY 12 HOURS; WITH 13.5 MG FOR TOTAL DOSE OF 49.5 MG)
     Route: 048
     Dates: end: 2019
  3. XTAMPZA ER [Suspect]
     Active Substance: OXYCODONE
     Indication: Neuropathy peripheral
     Dosage: 36 MG, 2X/DAY (EVERY 12 HOURS; WITH 18 MG DOSE)
     Route: 048
     Dates: start: 2019
  4. XTAMPZA ER [Suspect]
     Active Substance: OXYCODONE
     Dosage: 36 MG, 1X/DAY
     Route: 048
  5. XTAMPZA ER [Suspect]
     Active Substance: OXYCODONE
     Dosage: 36 MG, 2X/DAY ^SOMETIMES I^LL SPRINKLE IT, SOMETIMES TAKE IT WHOLE^
     Route: 048
     Dates: start: 20201102
  6. XTAMPZA ER [Suspect]
     Active Substance: OXYCODONE
     Dosage: 72 MG, 2X/DAY (EVERY 12 HOURS)
     Route: 048
  7. XTAMPZA ER [Suspect]
     Active Substance: OXYCODONE
     Indication: Neuralgia
     Dosage: UNK UNK, 2X/DAY (EVERY 12 HOURS)
     Route: 048
  8. XTAMPZA ER [Suspect]
     Active Substance: OXYCODONE
     Indication: Pain
     Dosage: 13.5 MG, 2X/DAY (EVERY 12 HOURS; WITH 36 MG DOSE FOR TOTAL DOSE OF 49.5 MG)
     Route: 048
     Dates: end: 2019
  9. XTAMPZA ER [Suspect]
     Active Substance: OXYCODONE
     Indication: Neuropathy peripheral
  10. XTAMPZA ER [Suspect]
     Active Substance: OXYCODONE
     Indication: Neuralgia
     Dosage: 18 MG, 2X/DAY (EVERY 12 HOURS; WITH 36 MG DOSE)
     Route: 048
     Dates: start: 2019
  11. XTAMPZA ER [Suspect]
     Active Substance: OXYCODONE
     Indication: Pain
  12. XTAMPZA ER [Suspect]
     Active Substance: OXYCODONE
     Indication: Neuropathy peripheral
  13. XTAMPZA ER [Suspect]
     Active Substance: OXYCODONE
     Indication: Pain
     Dosage: 27 MG, 1X/DAY
     Route: 048
     Dates: end: 20201102
  14. XTAMPZA ER [Suspect]
     Active Substance: OXYCODONE
     Indication: Neuralgia
  15. XTAMPZA ER [Suspect]
     Active Substance: OXYCODONE
     Indication: Neuropathy peripheral
  16. OXYCODONE [Suspect]
     Active Substance: OXYCODONE
     Indication: Breakthrough pain
     Dosage: DOSE INCREASED
  17. PERCOCET [Concomitant]
     Active Substance: ACETAMINOPHEN\OXYCODONE HYDROCHLORIDE
  18. SYMPROIC [Concomitant]
     Active Substance: NALDEMEDINE
  19. CRESTOR [Concomitant]
     Active Substance: ROSUVASTATIN CALCIUM
  20. PLAVIX [Concomitant]
     Active Substance: CLOPIDOGREL BISULFATE
  21. LOSARTAN [Concomitant]
     Active Substance: LOSARTAN
  22. PREDNISONE [Concomitant]
     Active Substance: PREDNISONE
  23. ZOLPIDEM [Concomitant]
     Active Substance: ZOLPIDEM TARTRATE
  24. UNSPECIFIED NASAL SPRAYS [Concomitant]
  25. FLUTICASONE [Concomitant]
     Active Substance: FLUTICASONE

REACTIONS (12)
  - Breakthrough pain [Not Recovered/Not Resolved]
  - Neuralgia [Not Recovered/Not Resolved]
  - Pain [Not Recovered/Not Resolved]
  - Neuropathy peripheral [Not Recovered/Not Resolved]
  - Gait disturbance [Not Recovered/Not Resolved]
  - Foreign body in throat [Not Recovered/Not Resolved]
  - Malabsorption [Not Recovered/Not Resolved]
  - Product quality issue [Not Recovered/Not Resolved]
  - Constipation [Not Recovered/Not Resolved]
  - Drug tolerance [Not Recovered/Not Resolved]
  - Therapeutic response shortened [Not Recovered/Not Resolved]
  - Therapeutic product effect decreased [Not Recovered/Not Resolved]

NARRATIVE: CASE EVENT DATE: 20180101
